FAERS Safety Report 8729561 (Version 2)
Quarter: 2012Q4

REPORT INFORMATION
  Report Type: 
  Country: CO (occurrence: CO)
  Receive Date: 20120817
  Receipt Date: 20121001
  Transmission Date: 20130627
  Serious: Yes (Death)
  Sender: FDA-Public Use
  Company Number: CO-ROCHE-1102534

PATIENT
  Age: 87 None
  Sex: Male

DRUGS (3)
  1. LUCENTIS [Suspect]
     Indication: RETINAL HAEMORRHAGE
     Route: 050
     Dates: start: 20120515
  2. BETALOC ZOK [Concomitant]
  3. FUROSEMIDE [Concomitant]

REACTIONS (2)
  - Myocardial infarction [Fatal]
  - Arrhythmia [Fatal]
